FAERS Safety Report 7404381-6 (Version None)
Quarter: 2011Q2

REPORT INFORMATION
  Report Type: 
  Country: None (occurrence: None)
  Receive Date: 20110408
  Receipt Date: 20070523
  Transmission Date: 20111010
  Serious: Yes (Death, Disabling, Other)
  Sender: FDA-Public Use
  Company Number: US-BAYER-200711244BWH

PATIENT
  Age: 72 Year
  Sex: Female
  Weight: 72.562 kg

DRUGS (17)
  1. TRASYLOL [Suspect]
     Indication: CORONARY ARTERY BYPASS
     Dosage: LOADING DOSE,200 ML
     Dates: start: 20050316, end: 20050316
  2. PLATELETS [Concomitant]
     Dosage: 24 U, UNK
  3. LEVOXYL [Concomitant]
     Dosage: 100 MCG
     Route: 048
     Dates: start: 20020101, end: 20050315
  4. ETOMIDATE [Concomitant]
     Dosage: 16 MG, UNK
     Route: 042
     Dates: start: 20050316, end: 20050316
  5. TRASYLOL [Suspect]
     Dosage: CONTINUED AT 50 ML/ HR
     Dates: start: 20050316, end: 20050316
  6. GLYBURIDE [Concomitant]
     Dosage: 6 MG, UNK
     Route: 048
     Dates: start: 19960101, end: 20050315
  7. LISINOPRIL [Concomitant]
     Dosage: 10 MG, UNK
     Route: 048
     Dates: start: 20020101, end: 20050315
  8. FRESH FROZEN PLASMA [Concomitant]
     Dosage: 4 U, UNK
  9. EPINEPHRINE [Concomitant]
     Dosage: UNK
     Route: 042
     Dates: start: 20050316
  10. FUROSEMIDE [Concomitant]
     Dosage: 40 MG, UNK
     Route: 048
     Dates: start: 20020101, end: 20050315
  11. MIDAZOLAM [Concomitant]
     Dosage: 10 MG, UNK
     Route: 042
     Dates: start: 20050316, end: 20050316
  12. SUFENTA PRESERVATIVE FREE [Concomitant]
     Dosage: 200 UNK, UNK
     Route: 042
     Dates: start: 20050316, end: 20050316
  13. PROPOFOL [Concomitant]
     Dosage: 50 MG, UNK
     Route: 042
     Dates: start: 20050316, end: 20050316
  14. GLUCOPHAGE [Concomitant]
     Dosage: 500 MG, UNK
     Route: 058
     Dates: start: 19980101, end: 20050315
  15. TOPROL-XL [Concomitant]
     Dosage: 25 MG, UNK
     Route: 048
     Dates: start: 20020101, end: 20050315
  16. DOPAMIN [METHYLDOPA] [Concomitant]
     Dosage: UNK
     Route: 042
     Dates: start: 20050316
  17. INSULIN BOVINE [Concomitant]
     Dosage: 100 U/ML, UNK
     Route: 058
     Dates: start: 20020101, end: 20050315

REACTIONS (13)
  - EMOTIONAL DISTRESS [None]
  - FEAR [None]
  - RENAL FAILURE [None]
  - TENSION [None]
  - MENTAL IMPAIRMENT [None]
  - ASTHENIA [None]
  - INJURY [None]
  - ANXIETY [None]
  - GENERAL PHYSICAL CONDITION ABNORMAL [None]
  - DEPRESSION [None]
  - PAIN [None]
  - ADVERSE EVENT [None]
  - ANHEDONIA [None]
